FAERS Safety Report 6203768-7 (Version None)
Quarter: 2009Q2

REPORT INFORMATION
  Report Type: 
  Country: None (occurrence: None)
  Receive Date: 20090526
  Receipt Date: 20090526
  Transmission Date: 20091009
  Serious: Yes (Other)
  Sender: FDA-Public Use
  Company Number: None

PATIENT
  Age: 25 Year
  Sex: Female
  Weight: 64.8644 kg

DRUGS (1)
  1. EFFEXOR XR [Suspect]
     Indication: ANXIETY
     Dates: start: 20080701, end: 20090521

REACTIONS (7)
  - FEELING DRUNK [None]
  - HALLUCINATION [None]
  - HEADACHE [None]
  - NIGHT SWEATS [None]
  - NIGHTMARE [None]
  - SLEEP TERROR [None]
  - WITHDRAWAL SYNDROME [None]
